FAERS Safety Report 23565814 (Version 2)
Quarter: 2024Q1

REPORT INFORMATION
  Report Type: Report from Study
  Country: US (occurrence: US)
  Receive Date: 20240226
  Receipt Date: 20240311
  Transmission Date: 20240410
  Serious: No
  Sender: FDA-Public Use
  Company Number: US-AMGEN-USASP2024039457

PATIENT
  Age: 69 Year
  Sex: Female

DRUGS (3)
  1. REPATHA [Suspect]
     Active Substance: EVOLOCUMAB
     Indication: Type IIa hyperlipidaemia
     Dosage: 140 MILLIGRAM, Q2WK
     Route: 065
  2. REPATHA [Suspect]
     Active Substance: EVOLOCUMAB
     Dosage: UNK UNK, Q2WK
     Route: 065
  3. REPATHA [Suspect]
     Active Substance: EVOLOCUMAB
     Dosage: UNK
     Route: 065

REACTIONS (3)
  - Injection site bruising [Unknown]
  - Device difficult to use [Unknown]
  - Device use error [Unknown]

NARRATIVE: CASE EVENT DATE: 20240222
